FAERS Safety Report 15600922 (Version 1)
Quarter: 2018Q4

REPORT INFORMATION
  Report Type: Spontaneous
  Country: US (occurrence: US)
  Receive Date: 20181108
  Receipt Date: 20181108
  Transmission Date: 20190205
  Serious: No
  Sender: FDA-Public Use
  Company Number: None

PATIENT
  Age: 73 Year
  Sex: Male

DRUGS (4)
  1. FENOFIBRATE 145MG [Concomitant]
  2. OMEPRAZOLE 20MG [Concomitant]
     Active Substance: OMEPRAZOLE
  3. SUMATRIPTAN 50MG [Concomitant]
     Active Substance: SUMATRIPTAN
  4. PROPRANOLOL [Suspect]
     Active Substance: PROPRANOLOL HYDROCHLORIDE
     Route: 048

REACTIONS (1)
  - Dyspnoea [None]

NARRATIVE: CASE EVENT DATE: 20180501
